FAERS Safety Report 6022592-1 (Version None)
Quarter: 2008Q4

REPORT INFORMATION
  Report Type: 
  Country: None (occurrence: None)
  Receive Date: 20081230
  Receipt Date: 20081226
  Transmission Date: 20090506
  Serious: Yes (Other)
  Sender: FDA-Public Use
  Company Number: PHHY2008JP33294

PATIENT

DRUGS (1)
  1. NEORAL [Suspect]
     Dosage: 25 MG
     Route: 048

REACTIONS (1)
  - BONE MARROW FAILURE [None]
